FAERS Safety Report 5053110-2 (Version None)
Quarter: 2006Q3

REPORT INFORMATION
  Report Type: 
  Country: None (occurrence: None)
  Receive Date: 20060717
  Receipt Date: 20060706
  Transmission Date: 20061208
  Serious: Yes (Other)
  Sender: FDA-Public Use
  Company Number: US-SANOFI-SYNTHELABO-A03200604340

PATIENT
  Sex: Female

DRUGS (9)
  1. LISINOPRIL [Concomitant]
     Dosage: UNK
     Route: 048
  2. CARBATROL [Concomitant]
     Dosage: UNK
     Route: 048
  3. LOPID [Concomitant]
     Dosage: UNK
     Route: 048
  4. LIPITOR [Concomitant]
     Dosage: UNK
     Route: 048
  5. SINGULAIR [Concomitant]
     Dosage: UNK
     Route: 048
  6. PREDNISONE [Concomitant]
     Dosage: UNK
     Route: 048
  7. KLONOPIN [Concomitant]
     Dosage: UNK
     Route: 048
  8. PAXIL [Concomitant]
     Dosage: UNK
     Route: 048
  9. AMBIEN [Suspect]
     Indication: INSOMNIA
     Route: 048
     Dates: end: 20060101

REACTIONS (6)
  - AMNESIA [None]
  - CONVULSION [None]
  - EATING DISORDER [None]
  - NIGHTMARE [None]
  - ROAD TRAFFIC ACCIDENT [None]
  - SLEEP WALKING [None]
